FAERS Safety Report 15174277 (Version 1)
Quarter: 2018Q3

REPORT INFORMATION
  Report Type: Spontaneous
  Country: IT (occurrence: IT)
  Receive Date: 20180720
  Receipt Date: 20180720
  Transmission Date: 20181010
  Serious: Yes (Other)
  Sender: FDA-Public Use
  Company Number: IT-US WORLDMEDS, LLC-USW201807-001083

PATIENT
  Age: 42 Year
  Sex: Male

DRUGS (6)
  1. MIRAPEXIN [Concomitant]
     Active Substance: PRAMIPEXOLE
  2. STALEVO [Concomitant]
     Active Substance: CARBIDOPA\ENTACAPONE\LEVODOPA
  3. XADAGO [Suspect]
     Active Substance: SAFINAMIDE MESYLATE
     Indication: PARKINSON^S DISEASE
     Dates: start: 20171229, end: 20180524
  4. QUETIAPINE. [Concomitant]
     Active Substance: QUETIAPINE
     Indication: PSYCHOTIC DISORDER
  5. SINEMET [Concomitant]
     Active Substance: CARBIDOPA\LEVODOPA
  6. SIRIO [Concomitant]
     Active Substance: CARBIDOPA\MELEVODOPA

REACTIONS (1)
  - Weight decreased [Unknown]

NARRATIVE: CASE EVENT DATE: 20180201
